FAERS Safety Report 5574388-2 (Version None)
Quarter: 2007Q4

REPORT INFORMATION
  Report Type: 
  Country: None (occurrence: None)
  Receive Date: 20071227
  Receipt Date: 20071220
  Transmission Date: 20080405
  Serious: Yes (Death)
  Sender: FDA-Public Use
  Company Number: JP-JNJFOC-20070800631

PATIENT
  Sex: Male
  Weight: 73 kg

DRUGS (18)
  1. PALIPERIDONE [Suspect]
     Indication: SCHIZOPHRENIA
     Route: 048
  2. GASTER D [Concomitant]
     Indication: GASTRIC ULCER
     Route: 048
  3. SEROQUEL [Concomitant]
     Route: 048
  4. SEROQUEL [Concomitant]
     Indication: SCHIZOPHRENIA
     Route: 048
  5. PROMETHAZINE [Concomitant]
     Indication: PARKINSONISM
     Route: 048
  6. U-PAN [Concomitant]
     Route: 048
  7. U-PAN [Concomitant]
     Indication: SCHIZOPHRENIA
     Route: 048
  8. AKINETON [Concomitant]
     Route: 048
  9. AKINETON [Concomitant]
     Route: 048
  10. AKINETON [Concomitant]
     Indication: PARKINSONISM
     Route: 048
  11. LENDORMIN [Concomitant]
     Indication: SCHIZOPHRENIA
     Route: 048
  12. SENNOSIDE [Concomitant]
     Route: 048
  13. SENNOSIDE [Concomitant]
     Indication: CONSTIPATION
     Route: 048
  14. LAXOBERON [Concomitant]
     Route: 048
  15. LAXOBERON [Concomitant]
     Indication: CONSTIPATION
     Route: 048
  16. DEPAKENE [Concomitant]
     Indication: SCHIZOPHRENIA
     Route: 048
  17. ATARAX [Concomitant]
     Indication: SCHIZOPHRENIA
     Route: 048
  18. SERANACE [Concomitant]
     Indication: SCHIZOPHRENIA
     Route: 042

REACTIONS (2)
  - COMPLETED SUICIDE [None]
  - SCHIZOPHRENIA [None]
